FAERS Safety Report 10557607 (Version 2)
Quarter: 2014Q4

REPORT INFORMATION
  Report Type: Spontaneous
  Country: US (occurrence: US)
  Receive Date: 20141031
  Receipt Date: 20141126
  Transmission Date: 20150529
  Serious: Yes (Hospitalization)
  Sender: FDA-Public Use
  Company Number: US-BAYER-2014-159558

PATIENT
  Age: 29 Year
  Sex: Female
  Weight: 73.92 kg

DRUGS (6)
  1. ROCEPHIN [Concomitant]
     Active Substance: CEFTRIAXONE SODIUM
  2. FLAGYL [Concomitant]
     Active Substance: METRONIDAZOLE\METRONIDAZOLE HYDROCHLORIDE
  3. METRONIDAZOLE. [Concomitant]
     Active Substance: METRONIDAZOLE
  4. CRYSELLE [Concomitant]
     Active Substance: ETHINYL ESTRADIOL\NORGESTREL
  5. MIRENA [Suspect]
     Active Substance: LEVONORGESTREL
     Indication: CONTRACEPTION
     Dosage: 20 MCG/24HR, CONT
     Route: 015
     Dates: start: 20121009, end: 20140328
  6. MONISTAT [Concomitant]
     Active Substance: MICONAZOLE NITRATE

REACTIONS (13)
  - Injury [None]
  - Vaginal haemorrhage [None]
  - Infertility female [None]
  - Drug ineffective [None]
  - Abdominal pain [None]
  - Anxiety [None]
  - Uterine perforation [None]
  - Emotional distress [None]
  - Pelvic pain [None]
  - Menorrhagia [None]
  - Anger [None]
  - Ectopic pregnancy with contraceptive device [None]
  - Depression [None]

NARRATIVE: CASE EVENT DATE: 201210
